FAERS Safety Report 6661187-3 (Version None)
Quarter: 2010Q1

REPORT INFORMATION
  Report Type: 
  Country: None (occurrence: None)
  Receive Date: 20100331
  Receipt Date: 20100323
  Transmission Date: 20100710
  Serious: Yes (Hospitalization, Other)
  Sender: FDA-Public Use
  Company Number: B0637889A

PATIENT
  Age: 61 Year
  Sex: Male

DRUGS (4)
  1. CARVEDILOL [Suspect]
     Indication: HYPERTENSION
     Route: 048
     Dates: start: 20090429
  2. CALCIUM ANTAGONIST [Concomitant]
  3. CRESTOR [Concomitant]
  4. OLMESARTAN MEDOXOMIL [Concomitant]

REACTIONS (4)
  - ARTERIOSPASM CORONARY [None]
  - ELECTROCARDIOGRAM ST SEGMENT ELEVATION [None]
  - PRINZMETAL ANGINA [None]
  - VENTRICULAR FIBRILLATION [None]
